FAERS Safety Report 5727990-9 (Version None)
Quarter: 2008Q2

REPORT INFORMATION
  Report Type: 
  Country: None (occurrence: None)
  Receive Date: 20080505
  Receipt Date: 20080428
  Transmission Date: 20081010
  Serious: Yes (Hospitalization)
  Sender: FDA-Public Use
  Company Number: SG-BOEHRINGER INGELHEIM GMBH, GERMANY-2008-DE-02509GD

PATIENT
  Age: 53 Year
  Sex: Male

DRUGS (3)
  1. NEVIRAPINE [Suspect]
     Indication: HIV INFECTION
  2. COMBIVIR [Suspect]
     Indication: HIV INFECTION
  3. CEFTRIAXONE [Concomitant]
     Indication: SALMONELLA BACTERAEMIA
     Route: 042

REACTIONS (5)
  - ABDOMINAL PAIN [None]
  - AORTITIS [None]
  - MYCOTIC ANEURYSM [None]
  - NAUSEA [None]
  - VOMITING [None]
